FAERS Safety Report 10195337 (Version 1)
Quarter: 2014Q2

REPORT INFORMATION
  Report Type: Spontaneous
  Country: US (occurrence: US)
  Receive Date: 20140526
  Receipt Date: 20140526
  Transmission Date: 20141212
  Serious: No
  Sender: FDA-Public Use
  Company Number: US-009507513-1405USA012180

PATIENT
  Sex: Female

DRUGS (1)
  1. NASONEX [Suspect]
     Dosage: ONE SPRAY IN EACH NOSTRIL ONCE DAILY
     Route: 055

REACTIONS (2)
  - Parosmia [Unknown]
  - Product odour abnormal [Unknown]
